FAERS Safety Report 25116203 (Version 6)
Quarter: 2025Q2

REPORT INFORMATION
  Report Type: Report from Study
  Country: CA (occurrence: CA)
  Receive Date: 20250325
  Receipt Date: 20250627
  Transmission Date: 20250716
  Serious: Yes (Life-Threatening, Hospitalization, Other)
  Sender: CELLTRION
  Company Number: CA-CELLTRION INC.-2024CA025840

PATIENT

DRUGS (22)
  1. USTEKINUMAB [Suspect]
     Active Substance: USTEKINUMAB
     Indication: Psoriasis
     Dosage: 90 MG, EVERY 4 WEEKS
     Route: 058
     Dates: start: 20241107
  2. USTEKINUMAB [Suspect]
     Active Substance: USTEKINUMAB
     Indication: Psoriasis
  3. BETAMETHASONE [Concomitant]
     Active Substance: BETAMETHASONE
  4. METFORMIN [Concomitant]
     Active Substance: METFORMIN HYDROCHLORIDE
  5. TERBINAFINE [Concomitant]
     Active Substance: TERBINAFINE
  6. METRONIDAZOLE [Concomitant]
     Active Substance: METRONIDAZOLE
  7. IPRATROPIUM [Concomitant]
     Active Substance: IPRATROPIUM
  8. HYDROXYCHLOROQUINE [Concomitant]
     Active Substance: HYDROXYCHLOROQUINE
  9. NYSTATIN [Concomitant]
     Active Substance: NYSTATIN
  10. FLOVENT [Concomitant]
     Active Substance: FLUTICASONE PROPIONATE
  11. FOLIC ACID [Concomitant]
     Active Substance: FOLIC ACID
  12. METHOTREXATE [Concomitant]
     Active Substance: METHOTREXATE
     Route: 048
  13. METHYLPREDNISOLONE [Concomitant]
     Active Substance: METHYLPREDNISOLONE
  14. ACITRETIN [Concomitant]
     Active Substance: ACITRETIN
  15. MELOXICAM [Concomitant]
     Active Substance: MELOXICAM
  16. PRAVASTATIN SODIUM [Concomitant]
     Active Substance: PRAVASTATIN SODIUM
  17. ATENOLOL [Concomitant]
     Active Substance: ATENOLOL
  18. RANITIDINE [Concomitant]
     Active Substance: RANITIDINE
  19. CEFIXIME [Concomitant]
     Active Substance: CEFIXIME
  20. VENTOLIN [Concomitant]
     Active Substance: ALBUTEROL SULFATE
  21. PAROXETINE [Concomitant]
     Active Substance: PAROXETINE
  22. GABAPENTIN [Concomitant]
     Active Substance: GABAPENTIN

REACTIONS (12)
  - Cardiac failure [Unknown]
  - Heart valve incompetence [Unknown]
  - Urinary tract infection [Recovered/Resolved]
  - Feeling abnormal [Recovering/Resolving]
  - Blood magnesium decreased [Recovering/Resolving]
  - Ill-defined disorder [Recovering/Resolving]
  - Pulmonary oedema [Unknown]
  - Abdominal pain upper [Unknown]
  - Road traffic accident [Unknown]
  - Pain in extremity [Unknown]
  - Intentional dose omission [Recovered/Resolved]
  - Off label use [Recovered/Resolved]

NARRATIVE: CASE EVENT DATE: 20241017
